FAERS Safety Report 4558268-7 (Version None)
Quarter: 2005Q1

REPORT INFORMATION
  Report Type: 
  Country: None (occurrence: None)
  Receive Date: 20050121
  Receipt Date: 20041103
  Transmission Date: 20050727
  Serious: Yes (Hospitalization)
  Sender: FDA-Public Use
  Company Number: US-BRISTOL-MYERS SQUIBB COMPANY-12755724

PATIENT
  Age: 33 Year
  Sex: Male
  Weight: 47 kg

DRUGS (7)
  1. REYATAZ [Suspect]
     Indication: HIV INFECTION
     Dosage: DOSAGE: 2-150 MG CAPSULES
     Route: 048
     Dates: start: 20040726, end: 20041007
  2. EMTRIVA [Suspect]
     Dates: start: 20040726, end: 20040101
  3. NORVIR [Suspect]
     Dates: start: 20040726, end: 20040101
  4. VIREAD [Suspect]
     Dates: start: 20040726, end: 20040101
  5. BACTRIM [Suspect]
     Dates: start: 20040801, end: 20040801
  6. ZITHROMAX [Concomitant]
     Dates: start: 20040712
  7. MULTI-VITAMINS [Concomitant]
     Dates: start: 20040712

REACTIONS (6)
  - BLOOD BILIRUBIN INCREASED [None]
  - DEHYDRATION [None]
  - DIABETES MELLITUS INSULIN-DEPENDENT [None]
  - HYPERGLYCAEMIA [None]
  - KETOACIDOSIS [None]
  - RASH [None]
